FAERS Safety Report 18453875 (Version 1)
Quarter: 2020Q4

REPORT INFORMATION
  Report Type: Report from Study
  Country: IT (occurrence: IT)
  Receive Date: 20201102
  Receipt Date: 20201102
  Transmission Date: 20210114
  Serious: Yes (Hospitalization)
  Sender: FDA-Public Use
  Company Number: IT-PURDUE-USA-2020-0173947

PATIENT
  Age: 82 Year
  Sex: Male
  Weight: 51 kg

DRUGS (2)
  1. OXYCODONE HYDROCHLORIDE. [Suspect]
     Active Substance: OXYCODONE HYDROCHLORIDE
     Indication: PAIN
     Dosage: 1 DF, PRN
     Route: 048
     Dates: start: 20200720, end: 20200724
  2. NALOXONE [Suspect]
     Active Substance: NALOXONE
     Indication: PAIN
     Dosage: 1 DF, DAILY
     Route: 065
     Dates: start: 20200720, end: 20200724

REACTIONS (4)
  - Confabulation [Recovering/Resolving]
  - Disorientation [Recovering/Resolving]
  - Delusion [Recovering/Resolving]
  - Drug intolerance [Recovering/Resolving]

NARRATIVE: CASE EVENT DATE: 20200722
